FAERS Safety Report 16077466 (Version 5)
Quarter: 2020Q1

REPORT INFORMATION
  Report Type: Report from Study
  Country: US (occurrence: US)
  Receive Date: 20190315
  Receipt Date: 20200106
  Transmission Date: 20200409
  Serious: Yes (Other)
  Sender: FDA-Public Use
  Company Number: US-ROCHE-2283169

PATIENT
  Age: 47 Year
  Sex: Male
  Weight: 74 kg

DRUGS (10)
  1. VYVANSE [Concomitant]
     Active Substance: LISDEXAMFETAMINE DIMESYLATE
     Indication: FATIGUE
     Route: 065
  2. ADDERALL [Concomitant]
     Active Substance: AMPHETAMINE ASPARTATE\AMPHETAMINE SULFATE\DEXTROAMPHETAMINE SACCHARATE\DEXTROAMPHETAMINE SULFATE
     Indication: FATIGUE
     Route: 065
  3. OCREVUS [Suspect]
     Active Substance: OCRELIZUMAB
     Dosage: FULL DOSE ;ONGOING: YES
     Route: 065
     Dates: start: 20190109
  4. OCREVUS [Suspect]
     Active Substance: OCRELIZUMAB
     Route: 065
     Dates: start: 20190705
  5. OCREVUS [Suspect]
     Active Substance: OCRELIZUMAB
     Dosage: ONGOING: NO
     Route: 065
     Dates: start: 201805
  6. BACLOFEN. [Concomitant]
     Active Substance: BACLOFEN
  7. METAXALONE. [Suspect]
     Active Substance: METAXALONE
     Route: 065
  8. NICOTINIC ACID [Concomitant]
     Active Substance: NIACIN
     Dosage: 2 OR 3 TIMES DAILY
     Route: 065
  9. OCREVUS [Suspect]
     Active Substance: OCRELIZUMAB
     Indication: MULTIPLE SCLEROSIS
     Dosage: HALF DOSE ;ONGOING: NO?SUBSEQUENT HALF DOSE ON: MAY/2018
     Route: 065
     Dates: start: 20180517, end: 20180531
  10. METAXALONE. [Suspect]
     Active Substance: METAXALONE
     Indication: NEURALGIA
     Route: 065

REACTIONS (5)
  - Paraesthesia [Unknown]
  - Nausea [Recovered/Resolved]
  - Cellulitis [Recovered/Resolved]
  - Headache [Recovered/Resolved]
  - Visual impairment [Recovered/Resolved]

NARRATIVE: CASE EVENT DATE: 20190223
